FAERS Safety Report 11889509 (Version 1)
Quarter: 2016Q1

REPORT INFORMATION
  Report Type: Spontaneous
  Country: TW (occurrence: TW)
  Receive Date: 20160105
  Receipt Date: 20160105
  Transmission Date: 20160526
  Serious: Yes (Hospitalization)
  Sender: FDA-Public Use
  Company Number: TW-SA-2015SA222920

PATIENT
  Age: 76 Year
  Sex: Female

DRUGS (11)
  1. APROVEL [Suspect]
     Active Substance: IRBESARTAN
     Indication: HYPERTENSION
     Route: 048
     Dates: start: 20140918
  2. FEBURIC [Concomitant]
     Active Substance: FEBUXOSTAT
     Route: 048
  3. SODIUM BICARBONATE. [Concomitant]
     Active Substance: SODIUM BICARBONATE
     Route: 048
  4. BOKEY [Concomitant]
     Route: 048
  5. LASIX [Concomitant]
     Active Substance: FUROSEMIDE
     Route: 048
  6. UROSIN [Concomitant]
     Active Substance: ALLOPURINOL
     Route: 048
  7. APROVEL [Suspect]
     Active Substance: IRBESARTAN
     Indication: CHRONIC KIDNEY DISEASE
     Route: 048
     Dates: start: 20140918
  8. CHALIAN [Concomitant]
     Route: 048
  9. LIPITOR [Concomitant]
     Active Substance: ATORVASTATIN CALCIUM
     Route: 048
  10. DOXABEN [Concomitant]
     Active Substance: DOXAZOSIN MESYLATE
     Route: 048
  11. EPOETIN BETA [Concomitant]
     Active Substance: ERYTHROPOIETIN
     Dosage: 5000 IU Q2W

REACTIONS (2)
  - Hyperkalaemia [Unknown]
  - Pain in extremity [Unknown]

NARRATIVE: CASE EVENT DATE: 20151210
